FAERS Safety Report 5721575-6 (Version None)
Quarter: 2008Q2

REPORT INFORMATION
  Report Type: 
  Country: None (occurrence: None)
  Receive Date: 20080429
  Receipt Date: 20070605
  Transmission Date: 20081010
  Serious: No
  Sender: FDA-Public Use
  Company Number: US-ASTRAZENECA-2007UW05629

PATIENT
  Age: 60 Year
  Sex: Female
  Weight: 60 kg

DRUGS (5)
  1. NEXIUM [Suspect]
     Indication: GASTROOESOPHAGEAL REFLUX DISEASE
     Route: 048
     Dates: start: 20070320, end: 20070321
  2. NEXIUM [Suspect]
     Route: 048
     Dates: start: 20061001
  3. ACTONEL [Concomitant]
     Indication: OSTEOPOROSIS
     Route: 048
  4. ADVIL [Concomitant]
     Indication: PAIN
     Route: 048
  5. CALCIUM [Concomitant]
     Indication: OSTEOPOROSIS
     Route: 048

REACTIONS (8)
  - COUGH [None]
  - DIZZINESS [None]
  - PALPITATIONS [None]
  - PANIC ATTACK [None]
  - PARAESTHESIA [None]
  - RHINORRHOEA [None]
  - THERAPEUTIC RESPONSE DECREASED [None]
  - VERTIGO [None]
